FAERS Safety Report 8079507-4 (Version None)
Quarter: 2012Q1

REPORT INFORMATION
  Report Type: 
  Country: None (occurrence: None)
  Receive Date: 20120128
  Receipt Date: 20110826
  Transmission Date: 20120608
  Serious: No
  Sender: FDA-Public Use
  Company Number: US-ABBOTT-11P-163-0849493-00

PATIENT
  Sex: Female

DRUGS (2)
  1. HUMIRA [Suspect]
     Indication: PSORIASIS
     Dosage: DAY ONE
     Route: 058
     Dates: start: 20110719
  2. HUMIRA [Suspect]
     Indication: PSORIATIC ARTHROPATHY
     Dosage: DAY 8
     Route: 058
     Dates: end: 20110726

REACTIONS (3)
  - INJECTION SITE SWELLING [None]
  - RASH [None]
  - URTICARIA [None]
